FAERS Safety Report 23783230 (Version 1)
Quarter: 2024Q2

REPORT INFORMATION
  Report Type: Spontaneous
  Country: BE (occurrence: BE)
  Receive Date: 20240425
  Receipt Date: 20240425
  Transmission Date: 20240716
  Serious: Yes (Hospitalization, Other)
  Sender: FDA-Public Use
  Company Number: None

PATIENT
  Age: 71 Year
  Sex: Female

DRUGS (15)
  1. MEDROL [Suspect]
     Active Substance: METHYLPREDNISOLONE
     Dosage: UNK
  2. CALCIUM CARBONATE [Suspect]
     Active Substance: CALCIUM CARBONATE
     Dosage: UNK
  3. COUMADIN [Suspect]
     Active Substance: WARFARIN SODIUM
     Indication: Atrial fibrillation
  4. PHENPROCOUMON [Suspect]
     Active Substance: PHENPROCOUMON
  5. ARANESP [Suspect]
     Active Substance: DARBEPOETIN ALFA
     Dosage: UNK
  6. MOLSIDOMINE [Suspect]
     Active Substance: MOLSIDOMINE
  7. LANOXIN [Suspect]
     Active Substance: DIGOXIN
     Indication: Atrial fibrillation
  8. CELLCEPT [Suspect]
     Active Substance: MYCOPHENOLATE MOFETIL
  9. BUMETANIDE [Suspect]
     Active Substance: BUMETANIDE
  10. ZOCOR [Suspect]
     Active Substance: SIMVASTATIN
  11. ZESTRIL [Suspect]
     Active Substance: LISINOPRIL
  12. LEVOTHYROXINE [Concomitant]
     Active Substance: LEVOTHYROXINE\LEVOTHYROXINE SODIUM
  13. OMEPRAZOLE [Concomitant]
     Active Substance: OMEPRAZOLE
  14. ALLOPURINOL [Concomitant]
     Active Substance: ALLOPURINOL
  15. CYCLOSPORINE [Concomitant]
     Active Substance: CYCLOSPORINE

REACTIONS (1)
  - Calciphylaxis [Unknown]
